FAERS Safety Report 15578938 (Version 1)
Quarter: 2018Q4

REPORT INFORMATION
  Report Type: Spontaneous
  Country: CA (occurrence: CA)
  Receive Date: 20181102
  Receipt Date: 20181102
  Transmission Date: 20190205
  Serious: Yes (Other)
  Sender: FDA-Public Use
  Company Number: CA-NOVOPROD-629580

PATIENT
  Age: 31 Year
  Sex: Female

DRUGS (2)
  1. SAXENDA [Suspect]
     Active Substance: LIRAGLUTIDE
     Indication: WEIGHT CONTROL
     Dosage: UNK
     Route: 065
     Dates: end: 201801
  2. SAXENDA [Suspect]
     Active Substance: LIRAGLUTIDE
     Dosage: UNK
     Route: 065
     Dates: start: 201810

REACTIONS (7)
  - Intracranial pressure increased [Unknown]
  - Migraine with aura [Recovered/Resolved]
  - Migraine with aura [Not Recovered/Not Resolved]
  - Optic nerve disorder [Unknown]
  - Vertigo [Recovered/Resolved]
  - Dyspepsia [Unknown]
  - Vertigo [Not Recovered/Not Resolved]
